FAERS Safety Report 7415830-1 (Version None)
Quarter: 2011Q2

REPORT INFORMATION
  Report Type: 
  Country: None (occurrence: None)
  Receive Date: 20110406
  Receipt Date: 20110326
  Transmission Date: 20111010
  Serious: Yes (Other)
  Sender: FDA-Public Use
  Company Number: 2011SP014280

PATIENT
  Sex: Female

DRUGS (1)
  1. CERAZETTE (DESOGESTREL /00754001/) [Suspect]
     Indication: PRODUCT USED FOR UNKNOWN INDICATION

REACTIONS (3)
  - DRUG EXPOSURE DURING PREGNANCY [None]
  - FALLOPIAN TUBE DISORDER [None]
  - ECTOPIC PREGNANCY [None]
